FAERS Safety Report 8020246-3 (Version None)
Quarter: 2012Q1

REPORT INFORMATION
  Report Type: 
  Country: None (occurrence: None)
  Receive Date: 20120103
  Receipt Date: 20111219
  Transmission Date: 20120608
  Serious: Yes (Other)
  Sender: FDA-Public Use
  Company Number: JP-WATSON-2011-22280

PATIENT
  Age: 28 Year
  Sex: Female

DRUGS (3)
  1. ELSPAR [Suspect]
     Indication: CHEMOTHERAPY
     Dosage: UNK
  2. VINCRISTINE [Suspect]
     Indication: CHEMOTHERAPY
     Dosage: UNK
  3. PREDNISONE TAB [Suspect]
     Indication: CHEMOTHERAPY
     Dosage: 60 MG/M2, UNKNOWN
     Route: 065

REACTIONS (1)
  - POSTERIOR REVERSIBLE ENCEPHALOPATHY SYNDROME [None]
